FAERS Safety Report 6974944-0 (Version None)
Quarter: 2010Q3

REPORT INFORMATION
  Report Type: 
  Country: None (occurrence: None)
  Receive Date: 20100909
  Receipt Date: 20090109
  Transmission Date: 20110219
  Serious: No
  Sender: FDA-Public Use
  Company Number: US-WYE-H07662309

PATIENT
  Sex: Female

DRUGS (1)
  1. PRISTIQ [Suspect]
     Route: 048

REACTIONS (1)
  - DYSPEPSIA [None]
